FAERS Safety Report 8985509 (Version 2)
Quarter: 2013Q1

REPORT INFORMATION
  Report Type: Spontaneous
  Country: JP (occurrence: JP)
  Receive Date: 20121226
  Receipt Date: 20130110
  Transmission Date: 20140127
  Serious: Yes (Other)
  Sender: FDA-Public Use
  Company Number: JP-JNJFOC-20121209147

PATIENT
  Sex: 0

DRUGS (2)
  1. TRAMCET [Suspect]
     Indication: PRODUCT USED FOR UNKNOWN INDICATION
     Dosage: 4 DOSE 1 PER 1 DAY
     Route: 048
     Dates: start: 20121207, end: 20121210
  2. WARFARIN POTASSIUM [Concomitant]
     Indication: ATRIAL FIBRILLATION
     Route: 048

REACTIONS (2)
  - Liver disorder [Recovered/Resolved]
  - Renal impairment [Unknown]
